FAERS Safety Report 7931190-1 (Version None)
Quarter: 2011Q4

REPORT INFORMATION
  Report Type: 
  Country: None (occurrence: None)
  Receive Date: 20111121
  Receipt Date: 20111114
  Transmission Date: 20120403
  Serious: Yes (Other)
  Sender: FDA-Public Use
  Company Number: ES-ELI_LILLY_AND_COMPANY-ES201111004442

PATIENT
  Sex: Male
  Weight: 46 kg

DRUGS (8)
  1. ORAMORPH SR [Concomitant]
     Indication: ANALGESIC THERAPY
     Dosage: UNK, 4 TIMES DAILY
     Route: 048
  2. ATROVENT [Concomitant]
     Indication: RESPIRATORY DISORDER
     Dosage: UNK, TWICE EVERY EIGHT HOURS
     Route: 055
  3. ROMILAR [Concomitant]
     Indication: COUGH
     Dosage: UNK, EVERY 8 HRS
     Route: 048
  4. OMEPRAZOLE [Concomitant]
     Dosage: UNK, QD
     Route: 048
  5. VENTOLIN [Concomitant]
     Indication: RESPIRATORY DISORDER
     Dosage: UNK, 2 EVERY EIGHT HOURS
     Route: 055
  6. DURAGESIC-100 [Concomitant]
     Indication: ANALGESIC THERAPY
     Dosage: UNK
  7. LORAZEPAM [Concomitant]
     Indication: SLEEP DISORDER THERAPY
     Dosage: UNK, QD
     Route: 048
  8. FORTEO [Suspect]
     Indication: OSTEOPOROSIS
     Dosage: 20 UG, QD
     Route: 058
     Dates: start: 20110117, end: 20110910

REACTIONS (3)
  - METASTASIS [None]
  - LUNG NEOPLASM MALIGNANT [None]
  - HEPATIC CALCIFICATION [None]
